FAERS Safety Report 8921744 (Version 2)
Quarter: 2012Q4

REPORT INFORMATION
  Report Type: 
  Country: IN (occurrence: IN)
  Receive Date: 20121122
  Receipt Date: 20121206
  Transmission Date: 20130627
  Serious: Yes (Death, Other)
  Sender: FDA-Public Use
  Company Number: IN-009507513-1211IND008342

PATIENT
  Age: 66 Year

DRUGS (1)
  1. JANUMET [Suspect]
     Dosage: UNK UNK, bid
     Route: 048

REACTIONS (3)
  - Death [Fatal]
  - Cerebrovascular accident [Unknown]
  - Hypotension [Unknown]
